FAERS Safety Report 11053870 (Version 2)
Quarter: 2015Q3

REPORT INFORMATION
  Report Type: Spontaneous
  Country: US (occurrence: US)
  Receive Date: 20150421
  Receipt Date: 20150701
  Transmission Date: 20151125
  Serious: No
  Sender: FDA-Public Use
  Company Number: US-TEVA-555222USA

PATIENT
  Sex: Female

DRUGS (3)
  1. FENTANYL CITRATE. [Suspect]
     Active Substance: FENTANYL CITRATE
     Indication: METASTATIC GASTRIC CANCER
     Route: 048
  2. FENTANYL. [Suspect]
     Active Substance: FENTANYL
     Indication: METASTATIC GASTRIC CANCER
     Route: 062
  3. DECADRON [Concomitant]
     Active Substance: DEXAMETHASONE

REACTIONS (1)
  - Hospice care [Not Recovered/Not Resolved]
